FAERS Safety Report 9880251 (Version 3)
Quarter: 2014Q1

REPORT INFORMATION
  Report Type: Spontaneous
  Country: US (occurrence: US)
  Receive Date: 20140207
  Receipt Date: 20140303
  Transmission Date: 20141002
  Serious: No
  Sender: FDA-Public Use
  Company Number: US-BRISTOL-MYERS SQUIBB COMPANY-19862176

PATIENT
  Age: 55 Year
  Sex: Female
  Weight: 53.51 kg

DRUGS (1)
  1. KENALOG INJ [Suspect]
     Indication: INFLUENZA LIKE ILLNESS
     Dates: start: 201208

REACTIONS (5)
  - Arthralgia [Unknown]
  - Injection site paraesthesia [Unknown]
  - Injection site atrophy [Unknown]
  - Injection site hypoaesthesia [Unknown]
  - Pain in extremity [Unknown]
